FAERS Safety Report 7597946-2 (Version None)
Quarter: 2011Q3

REPORT INFORMATION
  Report Type: 
  Country: None (occurrence: None)
  Receive Date: 20110708
  Receipt Date: 20110624
  Transmission Date: 20111222
  Serious: Yes (Other)
  Sender: FDA-Public Use
  Company Number: US-JNJFOC-20110701041

PATIENT
  Age: 53 Year
  Sex: Male

DRUGS (2)
  1. ROGAINE EXTRA STRENGTH (FOR MEN) [Suspect]
     Route: 061
  2. ROGAINE EXTRA STRENGTH (FOR MEN) [Suspect]
     Indication: HAIR GROWTH ABNORMAL
     Route: 061
     Dates: start: 19960101

REACTIONS (1)
  - CONVULSION [None]
